FAERS Safety Report 8796678 (Version 1)
Quarter: 2012Q4

REPORT INFORMATION
  Report Type: 
  Country: FR (occurrence: US)
  Receive Date: 20120919
  Receipt Date: 20120919
  Transmission Date: 20130627
  Serious: Yes (Other)
  Sender: FDA-Public Use
  Company Number: US-009507513-1209USA003451

PATIENT
  Sex: Male

DRUGS (3)
  1. ISENTRESS [Suspect]
     Dosage: UNK
     Route: 048
  2. PREZISTA [Suspect]
     Dosage: UNK
     Route: 048
  3. INTELENCE [Suspect]
     Dosage: UNK
     Route: 048

REACTIONS (6)
  - Sleep disorder [Unknown]
  - Nightmare [Unknown]
  - Anxiety disorder [Unknown]
  - Depression [Unknown]
  - Drug prescribing error [Unknown]
  - Pain in extremity [Unknown]
